FAERS Safety Report 6826456-2 (Version None)
Quarter: 2010Q3

REPORT INFORMATION
  Report Type: 
  Country: None (occurrence: None)
  Receive Date: 20100709
  Receipt Date: 20100608
  Transmission Date: 20110219
  Serious: No
  Sender: FDA-Public Use
  Company Number: US-BAYER-201022315NA

PATIENT
  Age: 57 Year
  Sex: Female

DRUGS (1)
  1. ULTRAVIST 300 [Suspect]
     Indication: COMPUTERISED TOMOGRAM THORAX
     Dosage: TOTAL DAILY DOSE: 75 ML  UNIT DOSE: 150 ML
     Route: 042
     Dates: start: 20100426, end: 20100426

REACTIONS (1)
  - URTICARIA [None]
